FAERS Safety Report 13371078 (Version 3)
Quarter: 2017Q2

REPORT INFORMATION
  Report Type: Spontaneous
  Country: US (occurrence: US)
  Receive Date: 20170324
  Receipt Date: 20170504
  Transmission Date: 20170830
  Serious: No
  Sender: FDA-Public Use
  Company Number: PHEH2017US008541

PATIENT
  Sex: Male

DRUGS (1)
  1. EXELON PATCH [Suspect]
     Active Substance: RIVASTIGMINE
     Indication: PRODUCT USED FOR UNKNOWN INDICATION
     Dosage: 13.3 MG, QD (PATCH 15 CM2, 27 MG RIVASTIGMINE BASE)
     Route: 062

REACTIONS (3)
  - Gait disturbance [Unknown]
  - Loss of consciousness [Unknown]
  - Product adhesion issue [Unknown]
